FAERS Safety Report 12918388 (Version 1)
Quarter: 2016Q4

REPORT INFORMATION
  Report Type: Spontaneous
  Country: US (occurrence: US)
  Receive Date: 20161107
  Receipt Date: 20161107
  Transmission Date: 20170207
  Serious: Yes (Other)
  Sender: FDA-Public Use
  Company Number: US-TEVA-710184USA

PATIENT
  Sex: Female
  Weight: 46.76 kg

DRUGS (2)
  1. NYSTATIN. [Suspect]
     Active Substance: NYSTATIN
     Indication: SYSTEMIC CANDIDA
     Dosage: 500,000 UNITS
     Route: 065
     Dates: start: 1998
  2. NYSTATIN. [Suspect]
     Active Substance: NYSTATIN
     Indication: CYSTIC FIBROSIS

REACTIONS (3)
  - Upper respiratory tract inflammation [Unknown]
  - Acute sinusitis [Unknown]
  - Upper airway obstruction [Unknown]
